FAERS Safety Report 10206855 (Version 5)
Quarter: 2017Q2

REPORT INFORMATION
  Report Type: Spontaneous
  Country: US (occurrence: US)
  Receive Date: 20140530
  Receipt Date: 20170405
  Transmission Date: 20170829
  Serious: Yes (Death, Hospitalization, Disabling, Other)
  Sender: FDA-Public Use
  Company Number: US-009507513-1405USA011545

PATIENT
  Sex: Female

DRUGS (1)
  1. FOSAMAX [Suspect]
     Active Substance: ALENDRONATE SODIUM
     Indication: OSTEOPOROSIS
     Dosage: 70 MG, QW
     Route: 048
     Dates: start: 1995, end: 2004

REACTIONS (36)
  - Pain [Unknown]
  - Femur fracture [Recovered/Resolved]
  - Arthralgia [Unknown]
  - Death [Fatal]
  - Drug use disorder [Unknown]
  - Osteomyelitis [Unknown]
  - Fall [Unknown]
  - Femur fracture [Not Recovered/Not Resolved]
  - Femur fracture [Not Recovered/Not Resolved]
  - Rheumatoid arthritis [Unknown]
  - Fracture delayed union [Unknown]
  - Epigastric discomfort [Unknown]
  - Haematoma [Unknown]
  - Pain [Unknown]
  - Patella fracture [Unknown]
  - Pain in extremity [Unknown]
  - Fall [Unknown]
  - Hypoaesthesia [Recovered/Resolved]
  - Osteoporosis [Not Recovered/Not Resolved]
  - Wrist fracture [Unknown]
  - Device breakage [Unknown]
  - Hypertension [Unknown]
  - Comminuted fracture [Recovering/Resolving]
  - Patella fracture [Unknown]
  - Gastrointestinal haemorrhage [Unknown]
  - Musculoskeletal discomfort [Recovering/Resolving]
  - Haemorrhage [Unknown]
  - Pain [Unknown]
  - Bone lesion [Unknown]
  - Hyperlipidaemia [Unknown]
  - Osteoarthritis [Unknown]
  - Femur fracture [Recovering/Resolving]
  - Groin pain [Unknown]
  - Depression [Unknown]
  - Femur fracture [Unknown]
  - Fracture [Unknown]

NARRATIVE: CASE EVENT DATE: 20040701
